FAERS Safety Report 5349225-1 (Version None)
Quarter: 2007Q2

REPORT INFORMATION
  Report Type: 
  Country: None (occurrence: None)
  Receive Date: 20070607
  Receipt Date: 20070528
  Transmission Date: 20071010
  Serious: Yes (Hospitalization)
  Sender: FDA-Public Use
  Company Number: TR-AVENTIS-200714465GDDC

PATIENT
  Age: 51 Year
  Sex: Female
  Weight: 65 kg

DRUGS (4)
  1. KETEK [Suspect]
     Dosage: DOSE: UNK
     Route: 048
     Dates: start: 20070504, end: 20070507
  2. KETEK [Suspect]
     Indication: BRONCHITIS
     Dosage: DOSE: UNK
     Route: 048
     Dates: start: 20070504, end: 20070507
  3. MINOSET PLUS [Concomitant]
     Dosage: DOSE: UNK
     Route: 048
     Dates: start: 20070504
  4. KREVAL [Concomitant]
     Dosage: DOSE: UNK
     Route: 048
     Dates: start: 20070504

REACTIONS (7)
  - CARDIOTOXICITY [None]
  - DYSPNOEA [None]
  - EMOTIONAL DISTRESS [None]
  - HEPATITIS TOXIC [None]
  - HEPATOTOXICITY [None]
  - NAUSEA [None]
  - VOMITING [None]
